FAERS Safety Report 8192180-X (Version None)
Quarter: 2012Q1

REPORT INFORMATION
  Report Type: 
  Country: None (occurrence: None)
  Receive Date: 20120307
  Receipt Date: 20120229
  Transmission Date: 20120608
  Serious: Yes (Hospitalization, Other)
  Sender: FDA-Public Use
  Company Number: NO-PFIZER INC-2012054558

PATIENT
  Age: 34 Year
  Sex: Female

DRUGS (3)
  1. VARENICLINE TARTRATE [Suspect]
     Indication: SMOKING CESSATION THERAPY
     Dosage: UNK
     Dates: start: 20100105, end: 20100107
  2. VARENICLINE TARTRATE [Suspect]
     Dosage: TWO TABLETS DAILY
     Dates: start: 20100108, end: 20100111
  3. PAROXETINE HCL [Concomitant]
     Indication: DEPRESSION
     Dosage: 50 MG, 1X/DAY

REACTIONS (6)
  - PSYCHOTIC DISORDER [None]
  - DEPRESSION [None]
  - ANXIETY [None]
  - SUICIDAL IDEATION [None]
  - OBSESSIVE THOUGHTS [None]
  - DIARRHOEA [None]
